FAERS Safety Report 8558523-X (Version None)
Quarter: 2012Q3

REPORT INFORMATION
  Report Type: 
  Country: None (occurrence: None)
  Receive Date: 20120801
  Receipt Date: 20120727
  Transmission Date: 20120928
  Serious: Yes (Hospitalization)
  Sender: FDA-Public Use
  Company Number: US-AMGEN-KDL438174

PATIENT
  Age: 47 Year
  Sex: Male
  Weight: 143.76 kg

DRUGS (22)
  1. METHOTREXATE SODIUM [Concomitant]
     Dosage: 12.5 MG, QWK
  2. CALCIUM + VITAMIN D                /01483701/ [Concomitant]
     Dosage: UNK UNK, BID
  3. NORCO [Concomitant]
     Dosage: UNK UNK, PRN
  4. ZOLPIDEM [Concomitant]
     Dosage: 10 MG, PRN
  5. ARAVA [Concomitant]
     Dosage: 20 MG, QD
  6. PLAVIX [Concomitant]
     Dosage: 75 MG, QD
  7. SIMVASTATIN [Concomitant]
     Dosage: 40 MG, QD
  8. ENBREL [Suspect]
     Indication: RHEUMATOID ARTHRITIS
     Dosage: 50 MG, QWK
     Route: 058
     Dates: start: 20090526, end: 20120227
  9. VITAMIN D [Concomitant]
     Dosage: 400 IU, QD
  10. LANTUS [Concomitant]
     Dosage: 42 IU, QD
  11. FOLIC ACID [Concomitant]
     Dosage: 1 MG, QD
  12. OMEPRAZOLE [Concomitant]
     Dosage: 40 MG, QD
  13. TRAMADOL HYDROCHLORIDE [Concomitant]
     Dosage: 50 MG, PRN
  14. ASPIRIN [Concomitant]
     Dosage: 325 MG, QD
  15. NITROGLYCERIN [Concomitant]
     Dosage: 0.4 MG, Q5MIN
  16. METHOTREXATE SODIUM [Concomitant]
     Dosage: 7.5 MG, QWK
  17. NOVOLOG [Concomitant]
     Dosage: 25 IU, TID
  18. METHOTREXATE SODIUM [Concomitant]
     Dosage: 10 MG, QWK
  19. OMEPRAZOLE [Concomitant]
     Dosage: 20 MG, UNK
  20. LISINOPRIL AND HYDROCHLOROTHIAZIDE [Concomitant]
     Dosage: UNK, QD
  21. ZOLPIDEM [Concomitant]
     Dosage: 10 MG, QHS
  22. LISINOPRIL AND HYDROCHLOROTHIAZIDE [Concomitant]
     Dosage: UNK UNK, BID

REACTIONS (26)
  - SEASONAL ALLERGY [None]
  - INJECTION SITE DISCOLOURATION [None]
  - TOOTHACHE [None]
  - NASAL SEPTUM DEVIATION [None]
  - JOINT SWELLING [None]
  - INJECTION SITE REACTION [None]
  - INJECTION SITE URTICARIA [None]
  - CONDITION AGGRAVATED [None]
  - RHEUMATOID ARTHRITIS [None]
  - BONE DISORDER [None]
  - RHINITIS ALLERGIC [None]
  - MUSCULOSKELETAL STIFFNESS [None]
  - EXOSTOSIS [None]
  - INJECTION SITE INDURATION [None]
  - INSOMNIA [None]
  - JOINT RANGE OF MOTION DECREASED [None]
  - SINUSITIS [None]
  - DIARRHOEA [None]
  - SYNOVITIS [None]
  - HAND DEFORMITY [None]
  - ABDOMINAL PAIN UPPER [None]
  - SYNOVIAL DISORDER [None]
  - RASH [None]
  - ARTHRALGIA [None]
  - WEIGHT DECREASED [None]
  - INJECTION SITE SWELLING [None]
